FAERS Safety Report 7478124-4 (Version None)
Quarter: 2011Q2

REPORT INFORMATION
  Report Type: 
  Country: None (occurrence: None)
  Receive Date: 20110511
  Receipt Date: 20110511
  Transmission Date: 20111010
  Serious: Yes (Hospitalization)
  Sender: FDA-Public Use
  Company Number: None

PATIENT
  Age: 62 Year
  Sex: Male
  Weight: 76.2043 kg

DRUGS (11)
  1. LIPITOR [Concomitant]
  2. LOVENOX [Concomitant]
  3. METFORMIN HCL [Concomitant]
  4. HYDROCHLOROTHIAZIDE [Concomitant]
  5. AVASTIN [Suspect]
     Indication: OESOPHAGEAL CANCER METASTATIC
     Dosage: 10MG/KG
     Dates: start: 20100326, end: 20110304
  6. GLIPIZIDE [Concomitant]
  7. ASPIRIN [Concomitant]
  8. IRINOTECAN HYDROCHLORIDE [Suspect]
     Dosage: 65MG/M2
     Dates: start: 20110311
  9. AMLODIPINE [Concomitant]
  10. LISINOPRIL [Concomitant]
  11. CISPLATIN [Suspect]
     Dosage: 30MG/M2
     Dates: start: 20100326, end: 20110311

REACTIONS (7)
  - BILE DUCT OBSTRUCTION [None]
  - LYMPHADENOPATHY [None]
  - BLOOD SODIUM DECREASED [None]
  - DISEASE PROGRESSION [None]
  - HAEMOGLOBIN DECREASED [None]
  - NEOPLASM [None]
  - HEPATIC ENZYME INCREASED [None]
